FAERS Safety Report 9781063 (Version 3)
Quarter: 2014Q1

REPORT INFORMATION
  Report Type: Report from Study
  Country: JP (occurrence: JP)
  Receive Date: 20131224
  Receipt Date: 20140127
  Transmission Date: 20141002
  Serious: Yes (Other)
  Sender: FDA-Public Use
  Company Number: JP-ASTELLAS-2013JP012672

PATIENT
  Sex: Female
  Weight: 50.85 kg

DRUGS (25)
  1. TACROLIMUS CAPSULES [Suspect]
     Indication: LUPUS NEPHRITIS
     Dosage: 3 MG, UNKNOWN/D
     Route: 048
     Dates: start: 20081031, end: 20091217
  2. TACROLIMUS CAPSULES [Suspect]
     Dosage: 2.5 MG, UNKNOWN/D
     Route: 048
     Dates: start: 20091218, end: 20100114
  3. TACROLIMUS CAPSULES [Suspect]
     Dosage: 2 MG, UNKNOWN/D
     Route: 048
     Dates: start: 20100115, end: 20110324
  4. TACROLIMUS CAPSULES [Suspect]
     Dosage: 3 MG, UID/QD
     Route: 048
     Dates: start: 20110325
  5. GASTER [Suspect]
     Indication: PROPHYLAXIS
     Dosage: 20 MG, UNKNOWN/D
     Route: 048
  6. PREDNISOLONE [Concomitant]
     Indication: LUPUS NEPHRITIS
     Dosage: 20 MG, UNKNOWN/D
     Route: 048
     Dates: end: 20090202
  7. PREDNISOLONE [Concomitant]
     Dosage: UNK
     Route: 048
     Dates: start: 20090202, end: 20090429
  8. PREDNISOLONE [Concomitant]
     Dosage: 17.5 MG, UNKNOWN/D
     Route: 048
     Dates: start: 20090430, end: 20090527
  9. PREDNISOLONE [Concomitant]
     Dosage: UNK
     Route: 048
     Dates: start: 20090528, end: 20090624
  10. PREDNISOLONE [Concomitant]
     Dosage: 15 MG, UNKNOWN/D
     Route: 048
     Dates: start: 20090625, end: 20090722
  11. PREDNISOLONE [Concomitant]
     Dosage: UNK
     Route: 048
     Dates: start: 20090723, end: 20090826
  12. PREDNISOLONE [Concomitant]
     Dosage: 12.5 MG, UNKNOWN/D
     Route: 048
     Dates: start: 20090827, end: 20091022
  13. PREDNISOLONE [Concomitant]
     Dosage: UNK
     Route: 048
     Dates: start: 20091023, end: 20091119
  14. PREDNISOLONE [Concomitant]
     Dosage: 10 MG, UNKNOWN/D
     Route: 048
     Dates: start: 20091120, end: 20101216
  15. PREDNISOLONE [Concomitant]
     Dosage: 20 MG, UNKNOWN/D
     Route: 048
     Dates: start: 20101217, end: 20110421
  16. PREDNISOLONE [Concomitant]
     Dosage: UNK
     Route: 048
     Dates: start: 20110422, end: 20110519
  17. PREDNISOLONE [Concomitant]
     Dosage: 17.5 MG, UNKNOWN/D
     Route: 048
     Dates: start: 20110520, end: 20110616
  18. PREDNISOLONE [Concomitant]
     Dosage: 15 MG, UNKNOWN/D
     Route: 048
     Dates: start: 20110617, end: 20110714
  19. PREDNISOLONE [Concomitant]
     Dosage: UNK
     Route: 048
     Dates: start: 20110715, end: 20110909
  20. PREDNISOLONE [Concomitant]
     Dosage: 12.5 MG, UNKNOWN/D
     Route: 048
     Dates: start: 20110910, end: 20120209
  21. PREDNISOLONE [Concomitant]
     Dosage: 10 MG, UNKNOWN/D
     Route: 048
     Dates: start: 20120209
  22. BENET [Concomitant]
     Indication: PROPHYLAXIS
     Dosage: 17.5 MG, WEEKLY
     Route: 048
     Dates: end: 20120516
  23. PERSANTIN-L [Concomitant]
     Indication: PROPHYLAXIS
     Dosage: 300 MG, UNKNOWN/D
     Route: 048
     Dates: end: 20121219
  24. PERSANTIN-L [Concomitant]
     Indication: LUPUS NEPHRITIS
  25. LIPITOR [Concomitant]
     Indication: HYPERLIPIDAEMIA
     Dosage: 10 MG, UNKNOWN/D
     Route: 048
     Dates: start: 20090105, end: 20090625

REACTIONS (5)
  - Off label use [Unknown]
  - Exposure during pregnancy [Unknown]
  - Premature labour [Unknown]
  - Pre-eclampsia [Recovering/Resolving]
  - Placental insufficiency [Recovered/Resolved]
